FAERS Safety Report 24970050 (Version 2)
Quarter: 2025Q1

REPORT INFORMATION
  Report Type: Report from Study
  Country: CA (occurrence: CA)
  Receive Date: 20250214
  Receipt Date: 20250218
  Transmission Date: 20250409
  Serious: Yes (Other)
  Sender: JOHNSON AND JOHNSON
  Company Number: CA-JNJFOC-20230654750

PATIENT
  Age: 32 Year
  Sex: Female
  Weight: 115 kg

DRUGS (3)
  1. REMICADE [Suspect]
     Active Substance: INFLIXIMAB
     Indication: Ankylosing spondylitis
     Dosage: DISCONTINUED AND SWITCHED TO RENFLEXIS
     Route: 041
     Dates: start: 20150226
  2. REMICADE [Suspect]
     Active Substance: INFLIXIMAB
     Dosage: PATIENT CONSIDERED CONTACTING PRESCRIBER TO INCREASE DOSING TO EVERY 5 WEEKS
     Route: 041
     Dates: start: 20230511
  3. REMICADE [Suspect]
     Active Substance: INFLIXIMAB
     Route: 041
     Dates: start: 2023

REACTIONS (8)
  - Inflammation [Unknown]
  - Off label use [Unknown]
  - Intra-uterine contraceptive device insertion [Recovered/Resolved]
  - Influenza [Not Recovered/Not Resolved]
  - Musculoskeletal stiffness [Not Recovered/Not Resolved]
  - Pain [Not Recovered/Not Resolved]
  - Therapeutic response shortened [Unknown]
  - Incorrect drug administration rate [Unknown]

NARRATIVE: CASE EVENT DATE: 20230101
